FAERS Safety Report 5489791-9 (Version None)
Quarter: 2007Q4

REPORT INFORMATION
  Report Type: 
  Country: None (occurrence: None)
  Receive Date: 20071018
  Receipt Date: 20071011
  Transmission Date: 20080405
  Serious: Yes (Other)
  Sender: FDA-Public Use
  Company Number: US-PFIZER INC-2007085203

PATIENT

DRUGS (1)
  1. LIPITOR [Suspect]

REACTIONS (2)
  - HEPATIC STEATOSIS [None]
  - HEPATITIS [None]
